FAERS Safety Report 6681653-4 (Version None)
Quarter: 2010Q2

REPORT INFORMATION
  Report Type: 
  Country: None (occurrence: None)
  Receive Date: 20100414
  Receipt Date: 20100412
  Transmission Date: 20101027
  Serious: Yes (Death, Hospitalization)
  Sender: FDA-Public Use
  Company Number: US-ELI_LILLY_AND_COMPANY-US201004002724

PATIENT
  Sex: Male

DRUGS (10)
  1. GEMCITABINE HCL [Suspect]
     Indication: PANCREATIC CARCINOMA METASTATIC
     Dosage: 1000 MG/KG, UNK
     Dates: start: 20091020, end: 20100126
  2. PACLITAXEL [Suspect]
     Indication: PANCREATIC CARCINOMA METASTATIC
     Dosage: 125 MG/M2, WEEKLY (1/W)
     Dates: start: 20091020, end: 20100126
  3. IBUPROFEN [Concomitant]
     Indication: PROPHYLAXIS
  4. LIDOCAINE [Concomitant]
     Indication: PROPHYLAXIS
  5. PRILOCAINE HYDROCHLORIDE [Concomitant]
     Indication: PROPHYLAXIS
  6. OXYCONTIN [Concomitant]
     Indication: PROPHYLAXIS
  7. PERCOCET [Concomitant]
     Indication: PROPHYLAXIS
  8. PREVACID [Concomitant]
     Indication: PROPHYLAXIS
  9. SENNA [Concomitant]
     Indication: PROPHYLAXIS
  10. DIAZEPAM [Concomitant]
     Indication: PROPHYLAXIS

REACTIONS (1)
  - DIFFUSE ALVEOLAR DAMAGE [None]
